FAERS Safety Report 7810158-X (Version None)
Quarter: 2011Q4

REPORT INFORMATION
  Report Type: 
  Country: None (occurrence: None)
  Receive Date: 20111007
  Receipt Date: 20111004
  Transmission Date: 20120403
  Serious: Yes (Other)
  Sender: FDA-Public Use
  Company Number: 1000016080

PATIENT
  Sex: Female

DRUGS (3)
  1. LEXAPRO [Suspect]
     Dosage: ORAL
     Route: 048
  2. ZOLOFT [Suspect]
  3. WELLBUTRIN [Suspect]

REACTIONS (4)
  - SEROTONIN SYNDROME [None]
  - FEELING ABNORMAL [None]
  - DRUG INTERACTION [None]
  - JOINT LOCK [None]
